FAERS Safety Report 4907525-0 (Version None)
Quarter: 2006Q1

REPORT INFORMATION
  Report Type: 
  Country: None (occurrence: None)
  Receive Date: 20060210
  Receipt Date: 20060106
  Transmission Date: 20060701
  Serious: Yes (Death, Other)
  Sender: FDA-Public Use
  Company Number: US-MERCK-0601USA00854

PATIENT
  Age: 74 Year
  Sex: Female
  Weight: 64 kg

DRUGS (6)
  1. VIOXX [Suspect]
     Indication: ARTHRITIS
     Route: 048
     Dates: start: 20030101, end: 20040901
  2. ALTACE [Concomitant]
     Route: 065
  3. COUMADIN [Concomitant]
     Route: 065
  4. PEPCID [Concomitant]
     Route: 065
  5. ZOCOR [Concomitant]
     Route: 065
  6. TRENTAL [Concomitant]
     Route: 065

REACTIONS (4)
  - CARDIO-RESPIRATORY ARREST [None]
  - CEREBROVASCULAR ACCIDENT [None]
  - PERSONALITY CHANGE [None]
  - RESPIRATORY FAILURE [None]
